FAERS Safety Report 4621765-X (Version None)
Quarter: 2005Q1

REPORT INFORMATION
  Report Type: 
  Country: None (occurrence: None)
  Receive Date: 20050329
  Receipt Date: 20050322
  Transmission Date: 20050727
  Serious: Yes (Hospitalization)
  Sender: FDA-Public Use
  Company Number: FR-MERCK-0503USA04023

PATIENT
  Age: 91 Year
  Sex: Female
  Weight: 48 kg

DRUGS (9)
  1. MODURETIC 5-50 [Suspect]
     Indication: HYPERTENSION
     Route: 048
     Dates: start: 20050123, end: 20050127
  2. SERC [Concomitant]
     Indication: VERTIGO
     Route: 065
     Dates: end: 20050127
  3. SERC [Concomitant]
     Route: 065
     Dates: start: 20050127
  4. VASTAREL [Concomitant]
     Indication: VERTIGO
     Route: 065
     Dates: end: 20050127
  5. VASTAREL [Concomitant]
     Route: 065
     Dates: start: 20050127
  6. ACTONEL [Concomitant]
     Indication: OSTEOPOROSIS
     Route: 065
     Dates: end: 20050127
  7. ACTONEL [Concomitant]
     Route: 065
     Dates: start: 20050127
  8. ZOLPIDEM TARTRATE [Concomitant]
     Route: 065
     Dates: end: 20050127
  9. DEROXAT [Suspect]
     Indication: DYSTHYMIC DISORDER
     Route: 065
     Dates: start: 20050119, end: 20050127

REACTIONS (5)
  - BLOOD POTASSIUM DECREASED [None]
  - CONFUSIONAL STATE [None]
  - DISTURBANCE IN ATTENTION [None]
  - HYPONATRAEMIA [None]
  - INCOHERENT [None]
